FAERS Safety Report 8007851-5 (Version None)
Quarter: 2011Q4

REPORT INFORMATION
  Report Type: 
  Country: None (occurrence: None)
  Receive Date: 20111227
  Receipt Date: 20111215
  Transmission Date: 20120403
  Serious: Yes (Other)
  Sender: FDA-Public Use
  Company Number: US-ASTRAZENECA-2011SE63214

PATIENT
  Age: 81 Year
  Sex: Female
  Weight: 61.2 kg

DRUGS (6)
  1. FURINOL [Concomitant]
  2. NEXIUM [Suspect]
     Route: 048
  3. NORVASC [Concomitant]
  4. ADVAIR DISKUS 100/50 [Concomitant]
  5. ZETIA [Concomitant]
  6. NEXIUM [Suspect]
     Indication: GASTROOESOPHAGEAL REFLUX DISEASE
     Dosage: 40 MG, ONE PILL IN THE MORNING AND ONE PILL AT NIGHT
     Route: 048

REACTIONS (6)
  - NASOPHARYNGITIS [None]
  - HAEMORRHAGE [None]
  - OESOPHAGEAL DISORDER [None]
  - OFF LABEL USE [None]
  - OESOPHAGEAL STENOSIS [None]
  - GASTROOESOPHAGEAL REFLUX DISEASE [None]
